APPROVED DRUG PRODUCT: ESTROGEL
Active Ingredient: ESTRADIOL
Strength: 0.06%
Dosage Form/Route: GEL;TOPICAL
Application: N021166 | Product #001
Applicant: ASCEND THERAPEUTICS US LLC
Approved: Feb 9, 2004 | RLD: No | RS: No | Type: DISCN